FAERS Safety Report 8379341-1 (Version None)
Quarter: 2012Q2

REPORT INFORMATION
  Report Type: 
  Country: None (occurrence: None)
  Receive Date: 20120523
  Receipt Date: 20120517
  Transmission Date: 20120825
  Serious: Yes (Other)
  Sender: FDA-Public Use
  Company Number: PHHY2012MX042587

PATIENT
  Sex: Female

DRUGS (3)
  1. ZOLEDRONOC ACID [Suspect]
     Indication: OSTEOPOROSIS
     Dosage: 5MG/100 ML PER YEAR
     Route: 042
     Dates: start: 20110101
  2. CADUET [Concomitant]
     Dosage: 1 DF, QD
     Dates: start: 20120201
  3. NIMESULIDE [Concomitant]
     Indication: SINUSITIS
     Dates: start: 20120401, end: 20120501

REACTIONS (1)
  - NEPHROLITHIASIS [None]
